FAERS Safety Report 15613058 (Version 1)
Quarter: 2018Q4

REPORT INFORMATION
  Report Type: Report from Study
  Country: CN (occurrence: CN)
  Receive Date: 20181113
  Receipt Date: 20181113
  Transmission Date: 20190205
  Serious: Yes (Life-Threatening)
  Sender: FDA-Public Use
  Company Number: CN-UNITED THERAPEUTICS-UNT-2018-016627

PATIENT
  Age: 39 Year
  Sex: Female
  Weight: 61 kg

DRUGS (7)
  1. UT-15C SR [Suspect]
     Active Substance: TREPROSTINIL DIOLAMINE
     Dosage: UNK
     Route: 048
     Dates: start: 20171215
  2. UT-15C SR [Suspect]
     Active Substance: TREPROSTINIL DIOLAMINE
     Dosage: 5.375 MG, TID
     Route: 048
     Dates: start: 20181001
  3. AMBRISENTAN [Concomitant]
     Active Substance: AMBRISENTAN
     Indication: PULMONARY ARTERIAL HYPERTENSION
     Dosage: 5, MG, TOTAL DAILY DOSE
     Route: 048
     Dates: start: 20170417
  4. WARFARIN [Concomitant]
     Active Substance: WARFARIN
     Indication: PULMONARY ARTERIAL HYPERTENSION
     Dosage: 2.25 MG, TOTAL DAILY DOSE
     Route: 048
     Dates: start: 20180601
  5. TORASEMIDE [Concomitant]
     Active Substance: TORSEMIDE
     Dosage: 10 MG, INTERMITTENTLY AS DIURETIC
     Route: 048
  6. UT-15C SR [Suspect]
     Active Substance: TREPROSTINIL DIOLAMINE
     Indication: PULMONARY ARTERIAL HYPERTENSION
     Dosage: 5.5 MG, TID
     Route: 048
     Dates: start: 20180926, end: 20180930
  7. TORASEMIDE [Concomitant]
     Active Substance: TORSEMIDE
     Indication: PULMONARY ARTERIAL HYPERTENSION
     Dosage: 2.5 MG, TOTAL DAILY DOSE
     Route: 048
     Dates: start: 20170723

REACTIONS (1)
  - Shock [Recovered/Resolved]

NARRATIVE: CASE EVENT DATE: 20181001
